FAERS Safety Report 6813997-7 (Version None)
Quarter: 2010Q3

REPORT INFORMATION
  Report Type: 
  Country: None (occurrence: None)
  Receive Date: 20100702
  Receipt Date: 20100628
  Transmission Date: 20110219
  Serious: Yes (Hospitalization, Other)
  Sender: FDA-Public Use
  Company Number: US-ASTRAZENECA-2007UW01781

PATIENT
  Age: 41 Year
  Sex: Male
  Weight: 111.6 kg

DRUGS (26)
  1. SEROQUEL [Suspect]
     Indication: BIPOLAR DISORDER
     Route: 048
     Dates: start: 20050101
  2. SEROQUEL [Suspect]
     Indication: INSOMNIA
     Route: 048
     Dates: start: 20050101
  3. SEROQUEL [Suspect]
     Indication: DEPRESSION
     Route: 048
     Dates: start: 20050101
  4. SEROQUEL [Suspect]
     Dosage: STRENGTH: 250 MG TO 500 MG DAILY
     Route: 048
     Dates: start: 20050920
  5. SEROQUEL [Suspect]
     Dosage: STRENGTH: 250 MG TO 500 MG DAILY
     Route: 048
     Dates: start: 20050920
  6. SEROQUEL [Suspect]
     Dosage: STRENGTH: 250 MG TO 500 MG DAILY
     Route: 048
     Dates: start: 20050920
  7. SEROQUEL [Suspect]
     Route: 048
     Dates: start: 20051225, end: 20061201
  8. SEROQUEL [Suspect]
     Route: 048
     Dates: start: 20051225, end: 20061201
  9. SEROQUEL [Suspect]
     Route: 048
     Dates: start: 20051225, end: 20061201
  10. SEROQUEL [Suspect]
     Route: 048
     Dates: start: 20060510, end: 20070101
  11. SEROQUEL [Suspect]
     Route: 048
     Dates: start: 20060510, end: 20070101
  12. SEROQUEL [Suspect]
     Route: 048
     Dates: start: 20060510, end: 20070101
  13. RISPERDAL [Concomitant]
     Indication: BIPOLAR DISORDER
     Route: 065
     Dates: start: 20040501, end: 20040101
  14. RISPERDAL [Concomitant]
     Indication: INSOMNIA
     Route: 065
     Dates: start: 20040501, end: 20040101
  15. GEODON [Concomitant]
     Dosage: 40 MG TO 60 MG
     Dates: start: 20050920
  16. LAMICTAL [Concomitant]
     Indication: DEPRESSED MOOD
     Dates: start: 20050101, end: 20060101
  17. LAMICTAL [Concomitant]
     Indication: BIPOLAR DISORDER
     Dates: start: 20050101, end: 20060101
  18. LAMICTAL [Concomitant]
     Dates: start: 20060417
  19. LAMICTAL [Concomitant]
     Dates: start: 20060417
  20. VERELAN [Concomitant]
     Dates: start: 20051227
  21. ZESTORETIC [Concomitant]
     Indication: HYPERTENSION
     Dates: start: 20050802
  22. DEPAKOTE [Concomitant]
     Indication: BIPOLAR DISORDER
     Dates: start: 20050101
  23. DEPAKOTE [Concomitant]
     Indication: DEPRESSION
     Dates: start: 20050101
  24. LITHIUM CARBONATE [Concomitant]
     Dates: start: 20050101
  25. SIMVASTATIN [Concomitant]
     Indication: BLOOD CHOLESTEROL INCREASED
  26. SIMVASTATIN [Concomitant]
     Indication: HYPERLIPIDAEMIA

REACTIONS (7)
  - BLOOD CHOLESTEROL INCREASED [None]
  - BLOOD GLUCOSE INCREASED [None]
  - DIABETES MELLITUS [None]
  - HYPERLIPIDAEMIA [None]
  - HYPERTENSION [None]
  - MYOCARDIAL INFARCTION [None]
  - TYPE 2 DIABETES MELLITUS [None]
